FAERS Safety Report 4488886-6 (Version None)
Quarter: 2004Q3

REPORT INFORMATION
  Report Type: 
  Country: None (occurrence: None)
  Receive Date: 20040921
  Receipt Date: 20040119
  Transmission Date: 20050211
  Serious: Yes (Hospitalization)
  Sender: FDA-Public Use
  Company Number: 163-20785-04010454

PATIENT
  Age: 50 Year
  Sex: Male
  Weight: 68 kg

DRUGS (4)
  1. THALOMID [Suspect]
     Indication: MULTIPLE MYELOMA
     Dosage: 100 MG, QHS, ORAL
     Route: 048
     Dates: start: 20030717
  2. DOXIL [Suspect]
     Indication: MULTIPLE MYELOMA
     Dosage: 40 MG/M2, Q 28 DAYS, INTRAVENOUS
     Route: 042
     Dates: start: 20030717
  3. VINCRISTINE [Suspect]
     Indication: MULTIPLE MYELOMA
     Dosage: 2 MG, Q 28 DAYS, INTRAVENOUS
     Route: 042
     Dates: start: 20030717
  4. DECADRON [Suspect]
     Indication: MULTIPLE MYELOMA
     Dosage: 40 MG, FOR 4 DAYS OUT OF 28 DAYS
     Dates: start: 20030717

REACTIONS (2)
  - PNEUMONIA [None]
  - PYREXIA [None]
